FAERS Safety Report 16357294 (Version 2)
Quarter: 2019Q2

REPORT INFORMATION
  Report Type: Spontaneous
  Country: US (occurrence: US)
  Receive Date: 20190527
  Receipt Date: 20190605
  Transmission Date: 20190711
  Serious: No
  Sender: FDA-Public Use
  Company Number: US-AMGEN INC.-USASL2019081745

PATIENT
  Age: 44 Year
  Sex: Female
  Weight: 54.88 kg

DRUGS (4)
  1. MAXALT [Concomitant]
     Active Substance: RIZATRIPTAN BENZOATE
     Indication: MIGRAINE
     Dosage: 10 MILLIGRAM
     Dates: start: 2014
  2. SEASONIQUE [Concomitant]
     Active Substance: ETHINYL ESTRADIOL\LEVONORGESTREL
     Indication: ORAL CONTRACEPTION
     Dosage: UNK UNK, QD
  3. ZANAFLEX [Concomitant]
     Active Substance: TIZANIDINE HYDROCHLORIDE
     Indication: HEADACHE
     Dosage: 4 MILLIGRAM, QD
     Dates: start: 201901
  4. AIMOVIG [Suspect]
     Active Substance: ERENUMAB-AOOE
     Indication: HEADACHE
     Dosage: 70 MILLIGRAM
     Route: 058
     Dates: start: 201808, end: 20190510

REACTIONS (4)
  - Migraine [Not Recovered/Not Resolved]
  - Headache [Unknown]
  - Arthralgia [Unknown]
  - Pruritus generalised [Unknown]

NARRATIVE: CASE EVENT DATE: 201811
